FAERS Safety Report 4440528-1 (Version None)
Quarter: 2004Q3

REPORT INFORMATION
  Report Type: 
  Country: None (occurrence: None)
  Receive Date: 20040728
  Receipt Date: 20040316
  Transmission Date: 20050211
  Serious: No
  Sender: FDA-Public Use
  Company Number: USA030843838

PATIENT
  Age: 13 Year
  Sex: Male
  Weight: 59 kg

DRUGS (3)
  1. STRATTERA [Suspect]
     Indication: ATTENTION DEFICIT/HYPERACTIVITY DISORDER
     Dosage: 25 MG/DAY
     Dates: start: 20030801
  2. CONCERTA [Concomitant]
  3. MULTIVITAMIN [Concomitant]

REACTIONS (7)
  - ASTHENIA [None]
  - ATTENTION DEFICIT/HYPERACTIVITY DISORDER [None]
  - DECREASED APPETITE [None]
  - DISTURBANCE IN ATTENTION [None]
  - EDUCATIONAL PROBLEM [None]
  - FATIGUE [None]
  - THERAPEUTIC RESPONSE DECREASED [None]
